FAERS Safety Report 7621653-0 (Version None)
Quarter: 2011Q3

REPORT INFORMATION
  Report Type: 
  Country: None (occurrence: None)
  Receive Date: 20110719
  Receipt Date: 20110706
  Transmission Date: 20111222
  Serious: Yes (Other)
  Sender: FDA-Public Use
  Company Number: CA-GENENTECH-292850

PATIENT
  Sex: Female
  Weight: 52 kg

DRUGS (6)
  1. XOLAIR [Suspect]
     Dosage: 150 MG, 1/MONTH
     Dates: start: 20091112
  2. XOLAIR [Suspect]
     Indication: ASTHMA
     Dosage: 150 MG, 1/MONTH
     Route: 058
     Dates: start: 20090917
  3. XOLAIR [Suspect]
     Dosage: 150 MG, 1/MONTH
     Route: 058
     Dates: start: 20091215
  4. PREDNISONE [Concomitant]
     Indication: PRODUCT USED FOR UNKNOWN INDICATION
     Dosage: 15 MG, UNK
  5. VENTOLIN HFA [Concomitant]
     Indication: PRODUCT USED FOR UNKNOWN INDICATION
     Dosage: 2 PUFF, PRN
  6. PREDNISONE [Concomitant]
     Dosage: 10 MG, UNK

REACTIONS (13)
  - BALANCE DISORDER [None]
  - NASOPHARYNGITIS [None]
  - PRODUCTIVE COUGH [None]
  - INFLUENZA [None]
  - COUGH [None]
  - NAUSEA [None]
  - OEDEMA PERIPHERAL [None]
  - FATIGUE [None]
  - WHEEZING [None]
  - MALAISE [None]
  - BLOOD PRESSURE DIASTOLIC DECREASED [None]
  - BREATH SOUNDS ABNORMAL [None]
  - BRONCHIAL OBSTRUCTION [None]
